FAERS Safety Report 7996808-6 (Version None)
Quarter: 2011Q4

REPORT INFORMATION
  Report Type: 
  Country: None (occurrence: None)
  Receive Date: 20111221
  Receipt Date: 20110915
  Transmission Date: 20120403
  Serious: No
  Sender: FDA-Public Use
  Company Number: US-MYLANLABS-2011S1019570

PATIENT
  Age: 76 Year
  Sex: Female

DRUGS (2)
  1. OXYBUTYNIN [Concomitant]
     Indication: INCONTINENCE
     Route: 048
     Dates: start: 20090101
  2. LETROZOLE [Suspect]
     Indication: BREAST CANCER
     Route: 048
     Dates: start: 20110801

REACTIONS (1)
  - ALOPECIA [None]
